FAERS Safety Report 4897674-8 (Version None)
Quarter: 2006Q1

REPORT INFORMATION
  Report Type: 
  Country: None (occurrence: None)
  Receive Date: 20060130
  Receipt Date: 20060130
  Transmission Date: 20060701
  Serious: No
  Sender: FDA-Public Use
  Company Number: None

PATIENT

DRUGS (1)
  1. QUINACRINE [Suspect]

REACTIONS (2)
  - LEGAL PROBLEM [None]
  - OFF LABEL USE [None]
